FAERS Safety Report 13373028 (Version 2)
Quarter: 2017Q3

REPORT INFORMATION
  Report Type: Spontaneous
  Country: HR (occurrence: HR)
  Receive Date: 20170327
  Receipt Date: 20170828
  Transmission Date: 20171127
  Serious: Yes (Hospitalization, Other)
  Sender: FDA-Public Use
  Company Number: HR-JNJFOC-20170322540

PATIENT
  Age: 40 Year
  Sex: Male

DRUGS (2)
  1. TREVICTA [Suspect]
     Active Substance: PALIPERIDONE PALMITATE
     Indication: SCHIZOPHRENIA
     Route: 030
     Dates: start: 20170316, end: 201703
  2. XEPLION [Suspect]
     Active Substance: PALIPERIDONE PALMITATE
     Indication: SCHIZOPHRENIA
     Route: 030
     Dates: start: 2016, end: 20170316

REACTIONS (7)
  - Cough [Recovered/Resolved]
  - Headache [Recovered/Resolved]
  - Cellulitis [Recovered/Resolved]
  - Erythema [Recovered/Resolved]
  - Oedema peripheral [Recovered/Resolved]
  - Chills [Recovered/Resolved]
  - Pruritus [Recovered/Resolved]

NARRATIVE: CASE EVENT DATE: 201703
